FAERS Safety Report 6257823-6 (Version None)
Quarter: 2009Q3

REPORT INFORMATION
  Report Type: 
  Country: None (occurrence: None)
  Receive Date: 20090706
  Receipt Date: 20090624
  Transmission Date: 20100115
  Serious: Yes (Other)
  Sender: FDA-Public Use
  Company Number: IE-MERCK-0906GBR00109

PATIENT
  Age: 70 Year
  Sex: Female

DRUGS (2)
  1. VYTORIN [Suspect]
     Route: 048
  2. CIPROFLOXACIN [Suspect]
     Route: 048

REACTIONS (3)
  - GAIT DISTURBANCE [None]
  - MYALGIA [None]
  - TENDON RUPTURE [None]
